FAERS Safety Report 20920039 (Version 2)
Quarter: 2022Q2

REPORT INFORMATION
  Report Type: Spontaneous
  Country: CH (occurrence: CH)
  Receive Date: 20220606
  Receipt Date: 20220621
  Transmission Date: 20220721
  Serious: Yes (Hospitalization)
  Sender: FDA-Public Use
  Company Number: CH-LUNDBECK-DKLU3048601

PATIENT
  Age: 50 Year
  Sex: Female

DRUGS (1)
  1. ABILIFY MAINTENA [Suspect]
     Active Substance: ARIPIPRAZOLE
     Indication: Product used for unknown indication
     Dosage: 300 MG
     Route: 065

REACTIONS (4)
  - Female orgasmic disorder [Unknown]
  - Schizophrenia [Unknown]
  - Drug ineffective [Unknown]
  - Drug level increased [Unknown]
